FAERS Safety Report 5479925-4 (Version None)
Quarter: 2007Q4

REPORT INFORMATION
  Report Type: 
  Country: None (occurrence: None)
  Receive Date: 20071008
  Receipt Date: 20070918
  Transmission Date: 20080405
  Serious: Yes (Hospitalization)
  Sender: FDA-Public Use
  Company Number: JP-BOEHRINGER INGELHEIM PHARMACEUTICALS, INC.-2000-NB-00198

PATIENT
  Sex: Male

DRUGS (4)
  1. VIRAMUNE [Suspect]
     Indication: HIV INFECTION CDC GROUP IV SUBGROUP E
     Route: 048
     Dates: start: 19981124
  2. ZERIT [Suspect]
     Indication: HIV INFECTION
     Route: 048
     Dates: start: 19981124
  3. EPIVIR [Suspect]
     Indication: HIV INFECTION
     Route: 048
     Dates: start: 19981124
  4. DIOVAN [Concomitant]
     Indication: DIABETIC NEPHROPATHY
     Route: 048
     Dates: start: 20060822

REACTIONS (5)
  - DIABETES MELLITUS [None]
  - DIARRHOEA [None]
  - HYPERTRIGLYCERIDAEMIA [None]
  - LIVER DISORDER [None]
  - NAUSEA [None]
